FAERS Safety Report 22180842 (Version 1)
Quarter: 2023Q2

REPORT INFORMATION
  Report Type: Spontaneous
  Country: US (occurrence: None)
  Receive Date: 20230405
  Receipt Date: 20230405
  Transmission Date: 20230721
  Serious: Yes (Hospitalization)
  Sender: FDA-Public Use
  Company Number: None

PATIENT
  Sex: Male

DRUGS (2)
  1. ERLOTINIB [Suspect]
     Active Substance: ERLOTINIB
     Indication: Lung neoplasm malignant
     Dosage: FREQUENCY : DAILY;?
     Route: 048
     Dates: start: 202302
  2. ERLOTINIB [Suspect]
     Active Substance: ERLOTINIB
     Indication: Bronchial carcinoma

REACTIONS (4)
  - Drug hypersensitivity [None]
  - Infection [None]
  - Asthenia [None]
  - Gait disturbance [None]
